FAERS Safety Report 7270534-3 (Version None)
Quarter: 2011Q1

REPORT INFORMATION
  Report Type: 
  Country: None (occurrence: None)
  Receive Date: 20110202
  Receipt Date: 20110131
  Transmission Date: 20110831
  Serious: Yes (Other)
  Sender: FDA-Public Use
  Company Number: GB-EISAI INC-E2090-01109-SPO-GB

PATIENT
  Age: 29 Year
  Sex: Male

DRUGS (4)
  1. ZONEGRAN [Suspect]
     Indication: PARTIAL SEIZURES
     Dosage: 50 MG
     Route: 048
     Dates: end: 20100101
  2. LEVETIRACETAM [Concomitant]
     Indication: PARTIAL SEIZURES
     Dosage: 3 G DAILY
     Route: 048
  3. CARBAMAZEPINE [Concomitant]
     Indication: PARTIAL SEIZURES
     Dosage: 1400 MG DAILY
     Route: 048
  4. ZONEGRAN [Suspect]
     Route: 048
     Dates: start: 20100101, end: 20100101

REACTIONS (2)
  - DIARRHOEA [None]
  - DIARRHOEA HAEMORRHAGIC [None]
